FAERS Safety Report 16483151 (Version 1)
Quarter: 2019Q2

REPORT INFORMATION
  Report Type: Spontaneous
  Country: JP (occurrence: JP)
  Receive Date: 20190627
  Receipt Date: 20190627
  Transmission Date: 20190711
  Serious: Yes (Other)
  Sender: FDA-Public Use
  Company Number: JP-PFIZER INC-2019267805

PATIENT

DRUGS (2)
  1. ZITHROMAC 250MG [Suspect]
     Active Substance: AZITHROMYCIN DIHYDRATE
     Indication: ANIMAL BITE
     Dosage: 250 MG, 1X/DAY
     Dates: start: 20190617
  2. CEFAZOLIN [Concomitant]
     Active Substance: CEFAZOLIN
     Indication: ANIMAL BITE
     Dosage: UNK

REACTIONS (3)
  - Product use in unapproved indication [Unknown]
  - Off label use [Unknown]
  - Cellulitis [Unknown]
